FAERS Safety Report 8555593-X (Version None)
Quarter: 2012Q3

REPORT INFORMATION
  Report Type: 
  Country: None (occurrence: None)
  Receive Date: 20120731
  Receipt Date: 20110824
  Transmission Date: 20120928
  Serious: No
  Sender: FDA-Public Use
  Company Number: US-ASTRAZENECA-2010SE30141

PATIENT
  Age: 38 Year
  Sex: Female
  Weight: 70.3 kg

DRUGS (23)
  1. SEROQUEL [Suspect]
     Indication: BIPOLAR II DISORDER
     Route: 048
     Dates: start: 20060101, end: 20110101
  2. SEROQUEL [Suspect]
     Route: 048
     Dates: end: 20100614
  3. SEROQUEL [Suspect]
     Route: 048
     Dates: start: 20100614
  4. SEROQUEL [Suspect]
     Route: 048
     Dates: start: 20100614
  5. SEROQUEL [Suspect]
     Route: 048
     Dates: start: 20100614
  6. LEVOTHYROXINE SODIUM [Concomitant]
     Indication: BASEDOW'S DISEASE
     Route: 048
  7. SEROQUEL [Suspect]
     Indication: BIPOLAR I DISORDER
     Route: 048
     Dates: start: 20060101, end: 20110101
  8. SEROQUEL [Suspect]
     Route: 048
     Dates: end: 20100614
  9. ZOLOFT [Concomitant]
     Indication: DEPRESSION
     Route: 048
  10. VITAMIN TAB [Concomitant]
     Route: 048
  11. SEROQUEL [Suspect]
     Route: 048
     Dates: start: 20100614
  12. SEROQUEL [Suspect]
     Route: 048
  13. SEROQUEL [Suspect]
     Indication: SLEEP DISORDER
     Route: 048
     Dates: start: 20060101, end: 20110101
  14. SEROQUEL [Suspect]
     Route: 048
  15. LAMICTAL [Concomitant]
     Indication: DEPRESSION
     Route: 048
  16. SEROQUEL [Suspect]
     Route: 048
     Dates: end: 20100614
  17. SEROQUEL [Suspect]
     Route: 048
     Dates: end: 20100614
  18. SEROQUEL [Suspect]
     Route: 048
  19. ABILIFY [Concomitant]
     Indication: DEPRESSION
     Route: 048
  20. SEROQUEL [Suspect]
     Indication: BIPOLAR DISORDER
     Route: 048
     Dates: start: 20060101, end: 20110101
  21. SEROQUEL [Suspect]
     Route: 048
  22. VYVANSE [Concomitant]
     Indication: ATTENTION DEFICIT/HYPERACTIVITY DISORDER
     Route: 048
  23. DHA FISH OIL [Concomitant]
     Route: 048

REACTIONS (9)
  - OFF LABEL USE [None]
  - CRYING [None]
  - INSOMNIA [None]
  - AGGRESSION [None]
  - HISTRIONIC PERSONALITY DISORDER [None]
  - DRUG DOSE OMISSION [None]
  - DISTURBANCE IN ATTENTION [None]
  - MOOD SWINGS [None]
  - MATERNAL EXPOSURE DURING PREGNANCY [None]
